FAERS Safety Report 5004832-0 (Version None)
Quarter: 2006Q2

REPORT INFORMATION
  Report Type: 
  Country: None (occurrence: None)
  Receive Date: 20060517
  Receipt Date: 20050829
  Transmission Date: 20061013
  Serious: Yes (Hospitalization)
  Sender: FDA-Public Use
  Company Number: US-MERCK-0508USA04750

PATIENT
  Age: 68 Year
  Sex: Male
  Weight: 109 kg

DRUGS (4)
  1. VIOXX [Suspect]
     Indication: ARTHRITIS
     Route: 048
     Dates: start: 20000101, end: 20041001
  2. VIOXX [Suspect]
     Route: 048
     Dates: start: 20000101, end: 20041001
  3. AMIODARONE [Suspect]
     Route: 048
     Dates: start: 20020622
  4. TYLENOL (CAPLET) [Concomitant]
     Route: 065

REACTIONS (34)
  - ANGINA UNSTABLE [None]
  - ANXIETY DISORDER [None]
  - ATRIAL FIBRILLATION [None]
  - CHEST PAIN [None]
  - CONSTIPATION [None]
  - CORONARY ARTERY DISEASE [None]
  - COUGH [None]
  - DERMATITIS [None]
  - DIARRHOEA [None]
  - DIZZINESS [None]
  - DUODENAL POLYP [None]
  - DYSPEPSIA [None]
  - DYSURIA [None]
  - EAR INFECTION [None]
  - EPIDIDYMITIS [None]
  - FATIGUE [None]
  - FLAT FEET [None]
  - GYNAECOMASTIA [None]
  - HAEMORRHOIDS [None]
  - HEADACHE [None]
  - HEART RATE IRREGULAR [None]
  - HIATUS HERNIA [None]
  - ISCHAEMIA [None]
  - MALAISE [None]
  - PAIN [None]
  - PAIN IN EXTREMITY [None]
  - PHOBIA [None]
  - PHOTOSENSITIVITY REACTION [None]
  - RHINORRHOEA [None]
  - ROTATOR CUFF SYNDROME [None]
  - SINUSITIS [None]
  - SPINAL OSTEOARTHRITIS [None]
  - SYNCOPE [None]
  - TESTICULAR RETRACTION [None]
